FAERS Safety Report 10558001 (Version 1)
Quarter: 2014Q4

REPORT INFORMATION
  Report Type: Spontaneous
  Country: MY (occurrence: None)
  Receive Date: 20141029
  Receipt Date: 20141029
  Transmission Date: 20150529
  Serious: Yes (Death)
  Sender: FDA-Public Use
  Company Number: 2589857

PATIENT
  Age: 59 Year
  Sex: Female

DRUGS (5)
  1. (CALCIUM CARBONATE) [Concomitant]
  2. (PARACETAMOL) [Concomitant]
  3. (MEROPENEM) [Suspect]
     Active Substance: MEROPENEM
     Indication: WOUND INFECTION
     Dosage: 1 G GRAM(S), UNKNOWN, INTRAVENOUS (NOT OTHERWISE SPECIFIED)
     Route: 042
  4. LOVASTATIN. [Suspect]
     Active Substance: LOVASTATIN
     Indication: DYSLIPIDAEMIA
     Dosage: 20 MG MILLIGRAM(S), UNKNOWN, ORAL
     Route: 048
  5. (AMLODIPINE) [Concomitant]

REACTIONS (1)
  - Thrombocytopenia [None]

NARRATIVE: CASE EVENT DATE: 20130219
